FAERS Safety Report 10388893 (Version 1)
Quarter: 2014Q1

REPORT INFORMATION
  Report Type: Spontaneous
  Country: US (occurrence: None)
  Receive Date: 20140306
  Receipt Date: 20140306
  Transmission Date: 20141002
  Serious: Yes (Other)
  Sender: FDA-Public Use
  Company Number: 163-21880-13070456

PATIENT
  Age: 72 Year
  Sex: Female

DRUGS (9)
  1. REVLIMID (LENALIDOMIDE) (15 MILLIGRAM, CAPSULES) [Suspect]
     Indication: PLASMA CELL MYELOMA
     Route: 048
     Dates: start: 20130110
  2. OXYCODONE AND ACETAMINOPHEN (OXYCOCET) [Concomitant]
  3. AMITRIPTYLINE (AMITRIPTYLINE) (TABLETS) [Concomitant]
  4. PRAMIPEXOLE (PRAMIPEXOLE) (TABLETS) [Concomitant]
  5. METRONIDAZOLE (METRONIDAZOLE) (TABLETS) [Concomitant]
  6. PAROXETINE (PAROXETINE) (TABLETS) [Concomitant]
  7. OMEPRAZOLE (OMEPRAZOLE) (CAPSULES) [Concomitant]
  8. GABAPENTIN (GABAPENTIN) (TABLETS) [Concomitant]
  9. DEXAMETHASONE (DEXAMETHASONE) (TABLETS) [Concomitant]

REACTIONS (4)
  - Clostridium difficile infection [None]
  - Hyperhidrosis [None]
  - Bacterial infection [None]
  - Infection [None]
